FAERS Safety Report 18660803 (Version 1)
Quarter: 2020Q4

REPORT INFORMATION
  Report Type: Spontaneous
  Country: DE (occurrence: TW)
  Receive Date: 20201224
  Receipt Date: 20201224
  Transmission Date: 20210114
  Serious: Yes (Other)
  Sender: FDA-Public Use
  Company Number: TW-ELI_LILLY_AND_COMPANY-TW202012011904

PATIENT
  Age: 56 Year
  Sex: Male
  Weight: 53 kg

DRUGS (5)
  1. CISPLATIN. [Concomitant]
     Active Substance: CISPLATIN
     Indication: TONGUE NEOPLASM MALIGNANT STAGE UNSPECIFIED
     Dosage: 100 MG/M2, UNK
     Route: 065
     Dates: start: 20140814, end: 20140924
  2. 5 FU [Concomitant]
     Active Substance: FLUOROURACIL
     Indication: TONGUE NEOPLASM MALIGNANT STAGE UNSPECIFIED
     Dosage: 1520 MG, UNKNOWN
     Route: 065
     Dates: start: 20180529, end: 20190115
  3. OPDIVO [Concomitant]
     Active Substance: NIVOLUMAB
     Indication: TONGUE NEOPLASM MALIGNANT STAGE UNSPECIFIED
     Dosage: 100 MG, UNK
     Route: 041
     Dates: start: 20180529, end: 20190115
  4. ERBITUX [Suspect]
     Active Substance: CETUXIMAB
     Indication: TONGUE NEOPLASM MALIGNANT STAGE UNSPECIFIED
     Dosage: UNK, UNKNOWN
     Route: 041
     Dates: start: 20180529, end: 20190112
  5. CISPLATIN. [Concomitant]
     Active Substance: CISPLATIN
     Dosage: UNK, UNKNOWN
     Route: 065
     Dates: start: 20180529, end: 20190115

REACTIONS (8)
  - Vomiting [Unknown]
  - Nausea [Unknown]
  - Stomatitis [Unknown]
  - Infusion related reaction [Recovered/Resolved]
  - Fatigue [Unknown]
  - Alopecia [Unknown]
  - Palmar-plantar erythrodysaesthesia syndrome [Unknown]
  - Neuropathy peripheral [Unknown]

NARRATIVE: CASE EVENT DATE: 20180529
